FAERS Safety Report 23213599 (Version 1)
Quarter: 2023Q4

REPORT INFORMATION
  Report Type: Spontaneous
  Country: CN (occurrence: None)
  Receive Date: 20231121
  Receipt Date: 20231121
  Transmission Date: 20240110
  Serious: Yes (Other)
  Sender: FDA-Public Use
  Company Number: 2023A262950

PATIENT
  Age: 23405 Day
  Sex: Female

DRUGS (1)
  1. BRILINTA [Suspect]
     Active Substance: TICAGRELOR
     Indication: Cerebral infarction
     Route: 048
     Dates: start: 20231108, end: 20231109

REACTIONS (3)
  - Dyspnoea [Unknown]
  - Chest discomfort [Recovering/Resolving]
  - Tachypnoea [Recovering/Resolving]

NARRATIVE: CASE EVENT DATE: 20231108
